FAERS Safety Report 21453618 (Version 6)
Quarter: 2022Q4

REPORT INFORMATION
  Report Type: Report from Study
  Country: ES (occurrence: ES)
  Receive Date: 20221013
  Receipt Date: 20221209
  Transmission Date: 20230113
  Serious: Yes (Death, Life-Threatening, Hospitalization, Other)
  Sender: FDA-Public Use
  Company Number: ES-CELGENE-ESP-20210808786

PATIENT
  Age: 86 Year
  Sex: Male

DRUGS (26)
  1. DEXAMETHASONE [Suspect]
     Active Substance: DEXAMETHASONE
     Indication: Product used for unknown indication
     Dosage: 20 MILLIGRAM
     Route: 048
     Dates: start: 20200212, end: 20200309
  2. DEXAMETHASONE [Suspect]
     Active Substance: DEXAMETHASONE
     Dosage: 20 MILLIGRAM
     Route: 048
     Dates: start: 20200318, end: 20200511
  3. DEXAMETHASONE [Suspect]
     Active Substance: DEXAMETHASONE
     Route: 048
     Dates: start: 20210217, end: 20210315
  4. DEXAMETHASONE [Suspect]
     Active Substance: DEXAMETHASONE
     Route: 048
     Dates: start: 20210420, end: 20210510
  5. DEXAMETHASONE [Suspect]
     Active Substance: DEXAMETHASONE
     Dosage: 1 TIMEPER WEEK
     Route: 048
     Dates: start: 20210818, end: 20220125
  6. DEXAMETHASONE [Suspect]
     Active Substance: DEXAMETHASONE
     Dosage: 1 TIME PER WEEK
     Route: 048
     Dates: start: 20220209, end: 20220411
  7. DEXAMETHASONE [Suspect]
     Active Substance: DEXAMETHASONE
     Dosage: 1 TIME PER WEEK
     Route: 048
     Dates: start: 20220419, end: 20220709
  8. REVLIMID [Suspect]
     Active Substance: LENALIDOMIDE
     Indication: Plasma cell myeloma
     Dosage: 10 MILLIGRAM
     Route: 048
     Dates: start: 20200212, end: 20200303
  9. REVLIMID [Suspect]
     Active Substance: LENALIDOMIDE
     Dosage: FREQUENCY TEXT: ONCE
     Route: 048
     Dates: start: 20200318, end: 20200407
  10. REVLIMID [Suspect]
     Active Substance: LENALIDOMIDE
     Dosage: FREQUENCY TEXT: ONCE?10 MILLIGRAM
     Route: 048
     Dates: start: 20200415, end: 20200505
  11. REVLIMID [Suspect]
     Active Substance: LENALIDOMIDE
     Dosage: ONCE
     Route: 048
     Dates: start: 20210217, end: 20210309
  12. REVLIMID [Suspect]
     Active Substance: LENALIDOMIDE
     Dosage: ONCE
     Route: 048
     Dates: start: 20210420, end: 20210510
  13. REVLIMID [Suspect]
     Active Substance: LENALIDOMIDE
     Dosage: ONCE
     Route: 048
     Dates: start: 20210518, end: 20210607
  14. REVLIMID [Suspect]
     Active Substance: LENALIDOMIDE
     Dosage: ONCE
     Route: 048
     Dates: start: 20210615, end: 20210705
  15. REVLIMID [Suspect]
     Active Substance: LENALIDOMIDE
     Dosage: ONCE
     Route: 048
     Dates: start: 20210714, end: 20210803
  16. REVLIMID [Suspect]
     Active Substance: LENALIDOMIDE
     Dosage: ONCE
     Route: 048
     Dates: start: 20210818, end: 20210907
  17. REVLIMID [Suspect]
     Active Substance: LENALIDOMIDE
     Dosage: ONCE
     Route: 048
     Dates: start: 20210921, end: 20211011
  18. REVLIMID [Suspect]
     Active Substance: LENALIDOMIDE
     Dosage: ONCE
     Route: 048
     Dates: start: 20211021, end: 20211110
  19. REVLIMID [Suspect]
     Active Substance: LENALIDOMIDE
     Dosage: ONCE
     Route: 048
     Dates: start: 20211207, end: 20211227
  20. REVLIMID [Suspect]
     Active Substance: LENALIDOMIDE
     Dosage: ONCE
     Route: 048
     Dates: start: 20220112, end: 20220125
  21. REVLIMID [Suspect]
     Active Substance: LENALIDOMIDE
     Dosage: ONCE
     Route: 048
     Dates: start: 20220126, end: 20220208
  22. REVLIMID [Suspect]
     Active Substance: LENALIDOMIDE
     Dosage: ONCE
     Route: 048
     Dates: start: 20220209, end: 20220228
  23. REVLIMID [Suspect]
     Active Substance: LENALIDOMIDE
     Dosage: ONCE
     Route: 048
     Dates: start: 20220315, end: 20220404
  24. REVLIMID [Suspect]
     Active Substance: LENALIDOMIDE
     Dosage: ONCE
     Route: 048
     Dates: start: 20220419, end: 20220509
  25. REVLIMID [Suspect]
     Active Substance: LENALIDOMIDE
     Dosage: ONCE
     Route: 048
     Dates: start: 20220527, end: 20220616
  26. REVLIMID [Suspect]
     Active Substance: LENALIDOMIDE
     Dosage: ONCE
     Route: 048
     Dates: start: 20220624, end: 20220709

REACTIONS (4)
  - Blood loss anaemia [Recovered/Resolved]
  - Off label use [Unknown]
  - Acute myeloid leukaemia [Fatal]
  - Thrombocytopenia [Recovered/Resolved]

NARRATIVE: CASE EVENT DATE: 20210314
